FAERS Safety Report 16064131 (Version 1)
Quarter: 2019Q1

REPORT INFORMATION
  Report Type: Spontaneous
  Country: CA (occurrence: CA)
  Receive Date: 20190312
  Receipt Date: 20190312
  Transmission Date: 20190418
  Serious: Yes (Other)
  Sender: FDA-Public Use
  Company Number: CA-FERRINGPH-2019FE00605

PATIENT

DRUGS (8)
  1. COLYTE                             /00751601/ [Concomitant]
     Indication: BOWEL PREPARATION
     Dosage: UNK
     Route: 065
     Dates: start: 20181027, end: 20181027
  2. LOSEC [Concomitant]
     Active Substance: OMEPRAZOLE
     Indication: PRODUCT USED FOR UNKNOWN INDICATION
     Dosage: 20 MG, 1 TIME DAILY
     Route: 065
  3. SYNTHROID [Concomitant]
     Active Substance: LEVOTHYROXINE SODIUM
     Indication: PRODUCT USED FOR UNKNOWN INDICATION
     Dosage: 100 ?G, 1 TIME DAILY
     Route: 065
  4. BISACODYL. [Concomitant]
     Active Substance: BISACODYL
     Indication: COMPUTERISED TOMOGRAM INTESTINE
     Dosage: 10 MG, 2 TIMES DAILY
     Route: 065
     Dates: start: 20181030, end: 20181030
  5. PICO-SALAX [Suspect]
     Active Substance: ANHYDROUS CITRIC ACID\MAGNESIUM OXIDE\SODIUM PICOSULFATE
     Indication: COMPUTERISED TOMOGRAM INTESTINE
     Dosage: 2 DF, ONCE/SINGLE
     Route: 048
     Dates: start: 20181030, end: 20181030
  6. BARIUM [Concomitant]
     Active Substance: BARIUM
     Indication: COMPUTERISED TOMOGRAM INTESTINE
     Dosage: 225 ML, 2 TIMES DAILY
     Route: 048
     Dates: start: 20181030
  7. CARDIZEM CD [Concomitant]
     Active Substance: DILTIAZEM HYDROCHLORIDE
     Indication: PRODUCT USED FOR UNKNOWN INDICATION
     Dosage: 120 MG, 1 TIME DAILY
     Route: 065
  8. WARFARIN [Concomitant]
     Active Substance: WARFARIN
     Indication: PRODUCT USED FOR UNKNOWN INDICATION
     Dosage: 5 MG, 1 TIME DAILY
     Route: 065
     Dates: start: 2002

REACTIONS (7)
  - Cardiac flutter [Unknown]
  - Constipation [Not Recovered/Not Resolved]
  - Irritable bowel syndrome [Not Recovered/Not Resolved]
  - Abdominal discomfort [Not Recovered/Not Resolved]
  - Treatment noncompliance [Recovered/Resolved]
  - Product use in unapproved indication [Recovered/Resolved]
  - Atrial fibrillation [Not Recovered/Not Resolved]

NARRATIVE: CASE EVENT DATE: 2018
